FAERS Safety Report 4286988-0 (Version None)
Quarter: 2004Q1

REPORT INFORMATION
  Report Type: 
  Country: None (occurrence: None)
  Receive Date: 20040204
  Receipt Date: 20040120
  Transmission Date: 20041129
  Serious: Yes (Hospitalization)
  Sender: FDA-Public Use
  Company Number: 440001T04DEU

PATIENT
  Age: 59 Year
  Sex: Male

DRUGS (5)
  1. SEROSTIM [Suspect]
     Indication: HIV INFECTION
     Dosage: 4 MG, 1 IN 1 DAYS, SUBCUTANEOUS
     Route: 058
     Dates: start: 20040108, end: 20040111
  2. SEROSTIM [Suspect]
     Indication: LIPODYSTROPHY ACQUIRED
     Dosage: 4 MG, 1 IN 1 DAYS, SUBCUTANEOUS
     Route: 058
     Dates: start: 20040108, end: 20040111
  3. TENOFOVIR [Concomitant]
  4. LAMIVUDINE [Concomitant]
  5. STAVUDINE [Concomitant]

REACTIONS (4)
  - BLOOD CREATINE PHOSPHOKINASE MB INCREASED [None]
  - CHEST PAIN [None]
  - RHABDOMYOLYSIS [None]
  - TROPONIN T INCREASED [None]
